FAERS Safety Report 15701013 (Version 2)
Quarter: 2018Q4

REPORT INFORMATION
  Report Type: Report from Study
  Country: US (occurrence: US)
  Receive Date: 20181207
  Receipt Date: 20181220
  Transmission Date: 20190205
  Serious: No
  Sender: FDA-Public Use
  Company Number: PHEH2018US050875

PATIENT
  Age: 51 Year
  Sex: Female

DRUGS (1)
  1. GILENYA [Suspect]
     Active Substance: FINGOLIMOD HYDROCHLORIDE
     Indication: MULTIPLE SCLEROSIS
     Dosage: 0.5 MG, QD
     Route: 048
     Dates: start: 20181127

REACTIONS (5)
  - Sinus headache [Unknown]
  - Feeling abnormal [Unknown]
  - Sinus disorder [Unknown]
  - Anxiety [Unknown]
  - Malaise [Unknown]

NARRATIVE: CASE EVENT DATE: 20181128
